FAERS Safety Report 10220739 (Version 1)
Quarter: 2014Q2

REPORT INFORMATION
  Report Type: Spontaneous
  Country: IT (occurrence: None)
  Receive Date: 20140604
  Receipt Date: 20140604
  Transmission Date: 20141212
  Serious: Yes (Hospitalization)
  Sender: FDA-Public Use
  Company Number: 2014AP003188

PATIENT
  Age: 80 Year
  Sex: Female

DRUGS (12)
  1. PAROXETINE [Suspect]
     Indication: DEPRESSION
     Route: 048
     Dates: start: 20140101, end: 20140309
  2. AMIODARONE HYDROCHLORIDE (AMIODARONE HYDROCHLORIDE) [Suspect]
     Indication: ARRHYTHMIA
     Route: 048
     Dates: start: 20131218, end: 20140309
  3. DELTACORTENE (PREDNISONE) [Suspect]
     Indication: PRODUCT USED FOR UNKNOWN INDICATION
     Route: 048
     Dates: start: 20131101, end: 20140309
  4. COUMADIN [Suspect]
     Indication: ATRIAL FIBRILLATION
     Route: 048
     Dates: start: 20140201, end: 20140309
  5. TRITTICO (TRAZODONE HYDROCHLORIDE) [Concomitant]
  6. FUROSEMIDE [Concomitant]
  7. LEXOTAN (BROMAZEPAM) [Concomitant]
  8. PANTOPRAZOLO (PANTOPRAZOLE SODIUM SESQUIHYDRATE) [Concomitant]
  9. KANRENOL (POTASSIUM CANRENOATE) [Concomitant]
  10. VALSARTAN ACTAVIS (VALSARTAN) [Concomitant]
  11. AMLODIPINE BESYLATE [Concomitant]
  12. BISOPROLOL HEMIFUMARATE [Concomitant]

REACTIONS (3)
  - Spontaneous haematoma [None]
  - Anaemia [None]
  - Drug interaction [None]
